FAERS Safety Report 23160426 (Version 2)
Quarter: 2023Q4

REPORT INFORMATION
  Report Type: Report from Study
  Country: US (occurrence: US)
  Receive Date: 20231108
  Receipt Date: 20231113
  Transmission Date: 20240110
  Serious: Yes (Death)
  Sender: FDA-Public Use
  Company Number: US-BAYER-2023A158354

PATIENT
  Age: 78 Year
  Sex: Male
  Weight: 85.4 kg

DRUGS (2)
  1. DAROLUTAMIDE [Suspect]
     Active Substance: DAROLUTAMIDE
     Indication: Prostate cancer
     Dosage: TOTAL DOSE 57000 MG, 600 MG TWICE A DAY 27-SEP-2023 AND 02-OCT-23
     Route: 048
     Dates: start: 20230830, end: 20231024
  2. LEUPROLIDE ACETATE [Suspect]
     Active Substance: LEUPROLIDE ACETATE
     Dosage: TOTAL DOSE 22.5 MG
     Route: 058
     Dates: end: 20230828

REACTIONS (1)
  - Cerebrovascular accident [Fatal]

NARRATIVE: CASE EVENT DATE: 20231024
